FAERS Safety Report 9912904 (Version 1)
Quarter: 2014Q1

REPORT INFORMATION
  Report Type: Spontaneous
  Country: US (occurrence: None)
  Receive Date: 20140212
  Receipt Date: 20140212
  Transmission Date: 20141002
  Serious: Yes (Other)
  Sender: FDA-Public Use
  Company Number: 2168676

PATIENT
  Age: 76 Year
  Sex: Male
  Weight: 89 kg

DRUGS (2)
  1. OXALIPLATIN [Suspect]
     Indication: ADENOCARCINOMA OF COLON
     Dosage: TOTAL
     Route: 042
     Dates: start: 20130214, end: 20130214
  2. FLUOROURACIL [Suspect]
     Indication: CHEMOTHERAPY
     Dosage: CYCLICAL
     Route: 041
     Dates: start: 20130214, end: 20130729

REACTIONS (3)
  - Paraesthesia [None]
  - Laryngospasm [None]
  - Dyspnoea [None]
